FAERS Safety Report 4688769-2 (Version None)
Quarter: 2005Q2

REPORT INFORMATION
  Report Type: 
  Country: None (occurrence: None)
  Receive Date: 20050613
  Receipt Date: 20050509
  Transmission Date: 20051028
  Serious: Yes (Other)
  Sender: FDA-Public Use
  Company Number: DEWYE656911MAY05

PATIENT
  Sex: Female
  Weight: 62 kg

DRUGS (5)
  1. ENBREL [Suspect]
     Indication: RHEUMATOID ARTHRITIS
     Route: 058
     Dates: start: 20041019, end: 20050101
  2. LANTAREL [Concomitant]
     Route: 056
  3. PREDNISOLONE [Concomitant]
     Dosage: 5 TO 25MG DAILY
     Route: 048
  4. PREDNISOLONE [Concomitant]
     Route: 048
  5. FOLIC ACID [Concomitant]

REACTIONS (2)
  - SPLENOMEGALY [None]
  - WEIL'S DISEASE [None]
